FAERS Safety Report 21850998 (Version 1)
Quarter: 2023Q1

REPORT INFORMATION
  Report Type: Spontaneous
  Country: US (occurrence: US)
  Receive Date: 20230111
  Receipt Date: 20230111
  Transmission Date: 20230417
  Serious: Yes (Other)
  Sender: FDA-Public Use
  Company Number: US-BEH-2023153941

PATIENT
  Sex: Female

DRUGS (4)
  1. HIZENTRA [Suspect]
     Active Substance: HUMAN IMMUNOGLOBULIN G
     Indication: Immunodeficiency common variable
     Dosage: 10 GRAM, QW
     Route: 058
     Dates: start: 202209
  2. HIZENTRA [Suspect]
     Active Substance: HUMAN IMMUNOGLOBULIN G
     Dosage: 1 GRAM, QW
     Route: 058
     Dates: start: 202209
  3. VITAMIN B12 [Suspect]
     Active Substance: CYANOCOBALAMIN
     Dosage: UNK
     Route: 065
  4. GLUTATHIONE [Suspect]
     Active Substance: GLUTATHIONE
     Dosage: UNK
     Route: 065

REACTIONS (5)
  - Post-acute COVID-19 syndrome [Unknown]
  - Abdominal pain [Unknown]
  - Contusion [Unknown]
  - Coagulopathy [Unknown]
  - Nasopharyngitis [Recovered/Resolved]
